FAERS Safety Report 15497714 (Version 1)
Quarter: 2018Q4

REPORT INFORMATION
  Report Type: Spontaneous
  Country: US (occurrence: US)
  Receive Date: 20181015
  Receipt Date: 20181015
  Transmission Date: 20190205
  Serious: Yes (Other)
  Sender: FDA-Public Use
  Company Number: US-ACCORD-073251

PATIENT
  Age: 38 Year
  Sex: Male

DRUGS (2)
  1. CARBOPLATIN. [Suspect]
     Active Substance: CARBOPLATIN
     Indication: GLIOBLASTOMA MULTIFORME
     Dosage: EVERY 5 WEEKS
     Route: 013
     Dates: start: 201603
  2. BEVACIZUMAB. [Suspect]
     Active Substance: BEVACIZUMAB
     Indication: GLIOBLASTOMA MULTIFORME
     Dosage: EVERY 5 WEEKS
     Route: 013
     Dates: start: 201603

REACTIONS (4)
  - Paralysis [Not Recovered/Not Resolved]
  - Eyelid ptosis [Unknown]
  - Cranial nerve disorder [Unknown]
  - Ophthalmoplegia [Unknown]
